FAERS Safety Report 9306278 (Version 1)
Quarter: 2013Q2

REPORT INFORMATION
  Report Type: Spontaneous
  Country: GB (occurrence: GB)
  Receive Date: 20130523
  Receipt Date: 20130523
  Transmission Date: 20140414
  Serious: Yes (Hospitalization, Other)
  Sender: FDA-Public Use
  Company Number: GB-TEVA-406071ISR

PATIENT
  Age: 76 Year
  Sex: Male

DRUGS (3)
  1. MYFENAX [Suspect]
     Indication: PEMPHIGOID
     Dosage: 1000 MILLIGRAM DAILY;
     Route: 065
     Dates: start: 20130423, end: 20130501
  2. MYFENAX [Suspect]
     Dosage: 1.5 GRAM DAILY; 1G, THEN 500MG PER DAY
     Route: 065
     Dates: start: 20130501, end: 20130509
  3. MYFENAX [Suspect]
     Dosage: 2 GRAM DAILY;
     Route: 065
     Dates: start: 20130509

REACTIONS (3)
  - Tachycardia [Unknown]
  - Myocardial infarction [Unknown]
  - Off label use [Unknown]
